FAERS Safety Report 23734906 (Version 2)
Quarter: 2024Q3

REPORT INFORMATION
  Report Type: Report from Study
  Country: US (occurrence: US)
  Receive Date: 20240412
  Receipt Date: 20240705
  Transmission Date: 20241017
  Serious: Yes (Other)
  Sender: ABBVIE
  Company Number: US-ABBVIE-5715124

PATIENT
  Age: 18 Year
  Sex: Male

DRUGS (1)
  1. HUMIRA [Suspect]
     Active Substance: ADALIMUMAB
     Indication: Crohn^s disease
     Route: 058
     Dates: end: 2023

REACTIONS (4)
  - Gastrointestinal disorder [Recovered/Resolved]
  - Drug ineffective [Recovered/Resolved]
  - Drug level decreased [Unknown]
  - Antibody test positive [Unknown]

NARRATIVE: CASE EVENT DATE: 20180101
